FAERS Safety Report 9222738 (Version 2)
Quarter: 2013Q2

REPORT INFORMATION
  Report Type: Report from Study
  Country: GB (occurrence: GB)
  Receive Date: 20130410
  Receipt Date: 20130614
  Transmission Date: 20140414
  Serious: Yes (Hospitalization, Other)
  Sender: FDA-Public Use
  Company Number: GB-ROCHE-1209249

PATIENT
  Age: 51 Year
  Sex: Female

DRUGS (2)
  1. ALTEPLASE [Suspect]
     Indication: ISCHAEMIC STROKE
     Dosage: 5.4 MG IV BOLUS OVER 2 MINS FOLLOWED BY AN INFUSION OF 48.6 MG
     Route: 040
     Dates: start: 20080812, end: 20080812
  2. ALTEPLASE [Suspect]
     Route: 040
     Dates: start: 20080812, end: 20080812

REACTIONS (5)
  - Cerebral infarction [Unknown]
  - Brain herniation [Unknown]
  - Brain oedema [Unknown]
  - Brain midline shift [Unknown]
  - Haemoglobin decreased [Unknown]
